FAERS Safety Report 25576713 (Version 1)
Quarter: 2025Q3

REPORT INFORMATION
  Report Type: Spontaneous
  Country: US (occurrence: None)
  Receive Date: 20250717
  Receipt Date: 20250717
  Transmission Date: 20251021
  Serious: Yes (Hospitalization)
  Sender: FDA-CTU
  Company Number: None

PATIENT
  Sex: Male

DRUGS (11)
  1. MYCOPHENOLIC ACID [Suspect]
     Active Substance: MYCOPHENOLIC ACID
     Indication: Renal transplant
     Dosage: FREQUENCY : TWICE A DAY;?
     Route: 048
     Dates: start: 20241126
  2. ACITRETIN [Concomitant]
     Active Substance: ACITRETIN
  3. CALCIUM [Concomitant]
     Active Substance: CALCIUM
  4. CRESTOR [Concomitant]
     Active Substance: ROSUVASTATIN CALCIUM
  5. EVEROLIMUS [Concomitant]
     Active Substance: EVEROLIMUS
  6. FLUOROURACIL [Concomitant]
     Active Substance: FLUOROURACIL
  7. FUROSEMIDE [Concomitant]
     Active Substance: FUROSEMIDE
  8. GABAPENTIN [Concomitant]
     Active Substance: GABAPENTIN
  9. ACETAMINOPHEN\HYDROCODONE [Concomitant]
     Active Substance: ACETAMINOPHEN\HYDROCODONE
  10. HYDROXYZINE HYDROCHLORIDE [Concomitant]
     Active Substance: HYDROXYZINE HYDROCHLORIDE
  11. JARIANCE [Concomitant]

REACTIONS (3)
  - Skin laceration [None]
  - Localised infection [None]
  - Therapy interrupted [None]
